FAERS Safety Report 10431926 (Version 3)
Quarter: 2015Q1

REPORT INFORMATION
  Report Type: Spontaneous
  Country: JP (occurrence: JP)
  Receive Date: 20140905
  Receipt Date: 20150320
  Transmission Date: 20150720
  Serious: Yes (Other)
  Sender: FDA-Public Use
  Company Number: JP-AMGEN-JPNSP2014067543

PATIENT
  Age: 61 Year
  Sex: Male
  Weight: 67 kg

DRUGS (5)
  1. RANMARK [Suspect]
     Active Substance: DENOSUMAB
     Indication: METASTASES TO BONE
     Dosage: 120 MG, QD
     Route: 058
     Dates: start: 20130508, end: 20140711
  2. CALFINA [Concomitant]
     Active Substance: ALFACALCIDOL
     Indication: ADJUSTED CALCIUM
     Dosage: 0.5 MUG, QD
     Route: 048
     Dates: start: 20121107
  3. SUTENT [Concomitant]
     Active Substance: SUNITINIB MALATE
     Indication: RENAL CANCER
     Dosage: 37.5 MG, QD
     Route: 048
     Dates: start: 20121107
  4. LANSOPRAZOLE. [Concomitant]
     Active Substance: LANSOPRAZOLE
     Indication: GASTRITIS
     Dosage: 30 MG, QD
     Route: 048
     Dates: start: 20121107
  5. ASPARA-CA [Concomitant]
     Active Substance: CALCIUM ASPARTATE
     Indication: ADJUSTED CALCIUM
     Dosage: 400 MG, BID
     Route: 048
     Dates: start: 20121107

REACTIONS (1)
  - Osteonecrosis of jaw [Recovered/Resolved]

NARRATIVE: CASE EVENT DATE: 201407
